FAERS Safety Report 16076284 (Version 3)
Quarter: 2019Q3

REPORT INFORMATION
  Report Type: Spontaneous
  Country: US (occurrence: US)
  Receive Date: 20190315
  Receipt Date: 20190927
  Transmission Date: 20191004
  Serious: No
  Sender: FDA-Public Use
  Company Number: US-PFIZER INC-2019105894

PATIENT
  Age: 67 Year
  Sex: Female
  Weight: 58.5 kg

DRUGS (2)
  1. METHOTREXATE. [Concomitant]
     Active Substance: METHOTREXATE
     Dosage: 15 MG, WEEKLY (2.5 MG 6 TABLETS WEEKLY)
     Dates: start: 201905
  2. XELJANZ XR [Suspect]
     Active Substance: TOFACITINIB CITRATE
     Indication: RHEUMATOID ARTHRITIS
     Dosage: 11 MG, DAILY
     Route: 048
     Dates: start: 201810

REACTIONS (2)
  - Rhinorrhoea [Recovered/Resolved]
  - Drug ineffective [Unknown]
